FAERS Safety Report 21424652 (Version 4)
Quarter: 2022Q4

REPORT INFORMATION
  Report Type: Report from Study
  Country: CA (occurrence: CA)
  Receive Date: 20221007
  Receipt Date: 20221118
  Transmission Date: 20230112
  Serious: Yes (Life-Threatening, Hospitalization, Other)
  Sender: FDA-Public Use
  Company Number: CA-BRISTOL-MYERS SQUIBB COMPANY-2022-115624

PATIENT
  Age: 69 Year
  Sex: Male
  Weight: 86 kg

DRUGS (9)
  1. AMLODIPINE [Concomitant]
     Active Substance: AMLODIPINE BESYLATE
     Indication: Product used for unknown indication
     Route: 048
     Dates: start: 20170501
  2. METOPROLOL [Concomitant]
     Active Substance: METOPROLOL
     Indication: Product used for unknown indication
     Route: 048
     Dates: start: 20170501
  3. APO-TRAVOPROST-TIMOP [Concomitant]
     Indication: Product used for unknown indication
     Dosage: 0.5 UNITS NOT SPECIFIED
     Route: 047
     Dates: start: 20180701
  4. AZOPT [Concomitant]
     Active Substance: BRINZOLAMIDE
     Indication: Product used for unknown indication
     Dosage: 1 UNIT NOT SPECIFIED
     Route: 047
     Dates: start: 20220715
  5. RAPAFLO [Concomitant]
     Active Substance: SILODOSIN
     Indication: Product used for unknown indication
     Route: 048
     Dates: start: 20171001
  6. BETAMETHASONE DIPROPIONATE [Concomitant]
     Active Substance: BETAMETHASONE DIPROPIONATE
     Indication: Product used for unknown indication
     Dosage: 0.05 UNIT NOT SPECIFIED
     Route: 061
     Dates: start: 20191010
  7. AVAPRO [Concomitant]
     Active Substance: IRBESARTAN
     Indication: Prophylaxis
     Route: 048
     Dates: start: 20220524
  8. COVID-19 VACCINE [Concomitant]
     Indication: Prophylaxis
     Route: 030
     Dates: start: 2021
  9. COVID-19 VACCINE [Concomitant]
     Route: 030
     Dates: start: 2021

REACTIONS (3)
  - Myasthenia gravis [Recovered/Resolved with Sequelae]
  - Myocarditis [Recovered/Resolved with Sequelae]
  - Myositis [Recovered/Resolved with Sequelae]

NARRATIVE: CASE EVENT DATE: 20220928
